FAERS Safety Report 8775289 (Version 1)
Quarter: 2012Q4

REPORT INFORMATION
  Report Type: 
  Country: BR (occurrence: BR)
  Receive Date: 20120910
  Receipt Date: 20120910
  Transmission Date: 20130627
  Serious: Yes (Hospitalization, Other)
  Sender: FDA-Public Use
  Company Number: BR-ABBOTT-12R-020-0975858-00

PATIENT
  Age: 36 None
  Sex: Male
  Weight: 68 kg

DRUGS (3)
  1. DEPAKOTE [Suspect]
     Indication: EPILEPSY
     Route: 048
  2. DEPAKOTE [Suspect]
     Route: 048
  3. NEOSALDINA [Concomitant]
     Route: 048

REACTIONS (14)
  - Syncope [Recovered/Resolved]
  - Convulsion [Recovered/Resolved]
  - Convulsion [Unknown]
  - Fall [Recovered/Resolved]
  - Head injury [Recovered/Resolved]
  - Laceration [Recovered/Resolved]
  - Craniocerebral injury [Recovering/Resolving]
  - Thrombosis [Recovering/Resolving]
  - Vomiting [Recovered/Resolved]
  - Dizziness [Recovered/Resolved]
  - Postictal headache [Recovered/Resolved]
  - Fall [Recovering/Resolving]
  - Fasting [Unknown]
  - Inappropriate schedule of drug administration [Unknown]
